FAERS Safety Report 10232647 (Version 1)
Quarter: 2014Q2

REPORT INFORMATION
  Report Type: Spontaneous
  Country: US (occurrence: None)
  Receive Date: 20140611
  Receipt Date: 20140611
  Transmission Date: 20141212
  Serious: Yes (Disabling)
  Sender: FDA-Public Use
  Company Number: None

PATIENT
  Age: 50 Year
  Sex: Female
  Weight: 69.85 kg

DRUGS (1)
  1. LEVOFLOXACIN 750MG [Suspect]
     Indication: URINARY TRACT INFECTION
     Route: 048
     Dates: start: 20140522, end: 20140609

REACTIONS (4)
  - Myalgia [None]
  - Malaise [None]
  - Abdominal pain [None]
  - Constipation [None]
